FAERS Safety Report 9115235 (Version 2)
Quarter: 2013Q1

REPORT INFORMATION
  Report Type: Spontaneous
  Country: US (occurrence: US)
  Receive Date: 20130225
  Receipt Date: 20130326
  Transmission Date: 20140127
  Serious: No
  Sender: FDA-Public Use
  Company Number: US-ROXANE LABORATORIES, INC.-2013-RO-00295RO

PATIENT
  Age: 89 Year
  Sex: Male

DRUGS (1)
  1. FLUTICASONE [Suspect]
     Indication: COUGH
     Route: 045
     Dates: start: 201302, end: 201302

REACTIONS (3)
  - Cough [Recovered/Resolved]
  - Drug ineffective for unapproved indication [Recovered/Resolved]
  - Product quality issue [Unknown]
